FAERS Safety Report 5917025-7 (Version None)
Quarter: 2008Q4

REPORT INFORMATION
  Report Type: 
  Country: None (occurrence: None)
  Receive Date: 20081009
  Receipt Date: 20081009
  Transmission Date: 20090506
  Serious: No
  Sender: FDA-Public Use
  Company Number: None

PATIENT
  Sex: Female
  Weight: 57.3 kg

DRUGS (3)
  1. CARBOPLATIN [Suspect]
     Dosage: 590 MG
     Dates: start: 20080924, end: 20080924
  2. TAXOTERE [Suspect]
     Dosage: 117 MG
     Dates: end: 20080924
  3. TAXOL [Suspect]
     Dosage: 93 MG
     Dates: end: 20081001

REACTIONS (1)
  - NEUTROPHIL COUNT DECREASED [None]
